FAERS Safety Report 21200144 (Version 1)
Quarter: 2022Q3

REPORT INFORMATION
  Report Type: Spontaneous
  Country: IT (occurrence: IT)
  Receive Date: 20220811
  Receipt Date: 20220811
  Transmission Date: 20221027
  Serious: Yes (Hospitalization, Other)
  Sender: FDA-Public Use
  Company Number: IT-LOTUS-2022-LOTUS-049354

PATIENT
  Age: 29 Year
  Sex: Female

DRUGS (3)
  1. METHOTREXATE [Suspect]
     Active Substance: METHOTREXATE
     Indication: Ectopic pregnancy
     Route: 030
  2. LEUCOVORIN [Suspect]
     Active Substance: LEUCOVORIN
     Indication: Ectopic pregnancy
  3. MIFEPRISTONE [Suspect]
     Active Substance: MIFEPRISTONE
     Indication: Ectopic pregnancy
     Route: 048

REACTIONS (3)
  - Ruptured ectopic pregnancy [Unknown]
  - Haemoperitoneum [Unknown]
  - Treatment failure [Unknown]
